FAERS Safety Report 7084727-1 (Version None)
Quarter: 2010Q4

REPORT INFORMATION
  Report Type: 
  Country: None (occurrence: None)
  Receive Date: 20101104
  Receipt Date: 20101018
  Transmission Date: 20110411
  Serious: Yes (Hospitalization)
  Sender: FDA-Public Use
  Company Number: US-MERCK-1010USA02190

PATIENT
  Age: 58 Year
  Sex: Male

DRUGS (5)
  1. ZOLINZA [Suspect]
     Indication: MYCOSIS FUNGOIDES
     Route: 048
  2. LASIX [Concomitant]
     Indication: OEDEMA
     Route: 065
  3. WARFARIN [Concomitant]
     Indication: DEEP VEIN THROMBOSIS
     Route: 065
  4. HYDROCORTISONE [Concomitant]
     Route: 065
  5. HYDROXYZINE [Concomitant]
     Indication: PRURITUS
     Route: 065

REACTIONS (1)
  - RENAL FAILURE [None]
